FAERS Safety Report 16031453 (Version 1)
Quarter: 2019Q1

REPORT INFORMATION
  Report Type: Spontaneous
  Country: AR (occurrence: AR)
  Receive Date: 20190304
  Receipt Date: 20190304
  Transmission Date: 20190418
  Serious: Yes (Other)
  Sender: FDA-Public Use
  Company Number: AR-PFIZER INC-2018449504

PATIENT
  Age: 70 Year
  Sex: Male

DRUGS (2)
  1. SUTENT [Suspect]
     Active Substance: SUNITINIB MALATE
     Dosage: 50 MG, CYCLIC (DAILY, SCHEME 4/2)
     Dates: start: 20180901, end: 201810
  2. SUTENT [Suspect]
     Active Substance: SUNITINIB MALATE
     Indication: METASTATIC RENAL CELL CARCINOMA
     Dosage: 50 MG, CYCLIC (DAILY, SCHEME 4/2)
     Dates: start: 20180901, end: 201810

REACTIONS (17)
  - Dehydration [Recovered/Resolved]
  - Gastrointestinal pain [Recovered/Resolved]
  - Toxicity to various agents [Recovered/Resolved]
  - Anal sphincter atony [Not Recovered/Not Resolved]
  - Incontinence [Not Recovered/Not Resolved]
  - Frequent bowel movements [Not Recovered/Not Resolved]
  - Colitis [Not Recovered/Not Resolved]
  - Abdominal pain upper [Recovered/Resolved]
  - Hair colour changes [Recovering/Resolving]
  - Vomiting [Recovered/Resolved]
  - Nausea [Recovering/Resolving]
  - Weight decreased [Recovering/Resolving]
  - Hiatus hernia [Recovered/Resolved]
  - Blood bilirubin increased [Recovered/Resolved]
  - Gastrointestinal disorder [Recovering/Resolving]
  - Appetite disorder [Recovering/Resolving]
  - Yellow skin [Recovered/Resolved]

NARRATIVE: CASE EVENT DATE: 201810
